FAERS Safety Report 8167307-6 (Version None)
Quarter: 2012Q1

REPORT INFORMATION
  Report Type: 
  Country: None (occurrence: None)
  Receive Date: 20120103
  Receipt Date: 20111118
  Transmission Date: 20120608
  Serious: Yes (Hospitalization)
  Sender: FDA-Public Use
  Company Number: AE-2011-003788

PATIENT
  Age: 50 Year
  Sex: Male
  Weight: 105.2345 kg

DRUGS (5)
  1. MIRTAZAPINE [Concomitant]
  2. PEGASYS [Concomitant]
  3. RIBAVIRIN [Concomitant]
  4. LITHIUM CARBONATE [Concomitant]
  5. INCIVEK [Suspect]
     Dosage: 6 OTHER (2 OTHER, 3 IN 1 D), ORAL
     Route: 048
     Dates: start: 20111022, end: 20111113

REACTIONS (6)
  - ANAEMIA [None]
  - DYSPHEMIA [None]
  - DYSPNOEA [None]
  - ANXIETY [None]
  - TREMOR [None]
  - ASTHENIA [None]
